FAERS Safety Report 4824894-0 (Version None)
Quarter: 2005Q4

REPORT INFORMATION
  Report Type: 
  Country: None (occurrence: None)
  Receive Date: 20051110
  Receipt Date: 20051031
  Transmission Date: 20060501
  Serious: Yes (Hospitalization)
  Sender: FDA-Public Use
  Company Number: FR-GLAXOSMITHKLINE-B0398989A

PATIENT
  Age: 52 Year
  Sex: Female

DRUGS (1)
  1. DEROXAT [Suspect]
     Dosage: 20MG SINGLE DOSE
     Route: 048
     Dates: start: 20050809, end: 20050809

REACTIONS (4)
  - DIZZINESS [None]
  - HEADACHE [None]
  - NAUSEA [None]
  - PYREXIA [None]
